FAERS Safety Report 16698045 (Version 2)
Quarter: 2019Q4

REPORT INFORMATION
  Report Type: Spontaneous
  Country: US (occurrence: US)
  Receive Date: 20190813
  Receipt Date: 20191016
  Transmission Date: 20200122
  Serious: No
  Sender: FDA-Public Use
  Company Number: US-SHIRE-US201925439

PATIENT
  Sex: Male

DRUGS (1)
  1. NATPARA (PARATHYROID HORMONE) [Suspect]
     Active Substance: PARATHYROID HORMONE
     Indication: PRODUCT USED FOR UNKNOWN INDICATION
     Dosage: 75 MICROGRAM, 1X/DAY:QD
     Route: 058
     Dates: start: 20180905

REACTIONS (5)
  - Feeling abnormal [Unknown]
  - Rash [Unknown]
  - Hypoaesthesia [Unknown]
  - Blood calcium decreased [Unknown]
  - Recalled product [Unknown]
